FAERS Safety Report 14831052 (Version 1)
Quarter: 2018Q2

REPORT INFORMATION
  Report Type: Report from Study
  Country: None (occurrence: US)
  Receive Date: 20180430
  Receipt Date: 20180430
  Transmission Date: 20180711
  Serious: Yes (Other)
  Sender: FDA-Public Use
  Company Number: US-ABBVIE-18K-163-2337800-00

PATIENT
  Sex: Female

DRUGS (1)
  1. HUMIRA [Suspect]
     Active Substance: ADALIMUMAB
     Indication: CROHN^S DISEASE
     Route: 058
     Dates: start: 20170610

REACTIONS (7)
  - Gastrointestinal inflammation [Unknown]
  - Intestinal obstruction [Unknown]
  - Gastrointestinal ulcer [Unknown]
  - Hiatus hernia [Unknown]
  - Headache [Unknown]
  - Abdominal pain upper [Unknown]
  - Neuropathy peripheral [Not Recovered/Not Resolved]
